FAERS Safety Report 9463171 (Version 2)
Quarter: 2013Q3

REPORT INFORMATION
  Report Type: Spontaneous
  Country: US (occurrence: US)
  Receive Date: 20130817
  Receipt Date: 20130817
  Transmission Date: 20140515
  Serious: Yes (Other)
  Sender: FDA-Public Use
  Company Number: US-JNJFOC-20130702035

PATIENT
  Age: 49 Year
  Sex: Female

DRUGS (9)
  1. ROGAINE REGULAR STRENGTH WOMEN (2%) [Suspect]
     Indication: ALOPECIA
     Dosage: STARTED USING TWICE A DAY, THEN WENT DOWN TO ONCE A DAY, THEN EVERY OTHER DAY
     Route: 061
     Dates: start: 201306, end: 20130629
  2. ROGAINE REGULAR STRENGTH WOMEN (2%) [Suspect]
     Indication: ALOPECIA
     Dosage: STARTED USING TWICE A DAY, THEN WENT DOWN TO ONCE A DAY, THEN EVERY OTHER DAY
     Route: 061
     Dates: start: 20130518, end: 201306
  3. ADVAIR [Concomitant]
     Indication: ASTHMA
     Dosage: 2 (DRUG UNIT UNSPECIFIED) FROM LESS THAN 10 YEARS
     Route: 065
     Dates: start: 2002
  4. ALBUTEROL [Concomitant]
     Indication: ASTHMA
     Dosage: AS NECESSARY
     Route: 065
     Dates: start: 1990
  5. ADDERALL [Concomitant]
     Indication: ATTENTION DEFICIT/HYPERACTIVITY DISORDER
     Route: 065
     Dates: start: 2006
  6. FLONASE [Concomitant]
     Indication: MULTIPLE ALLERGIES
     Route: 065
  7. MULTIVITAMINS [Concomitant]
     Indication: PRODUCT USED FOR UNKNOWN INDICATION
     Route: 065
  8. UNSPECIFIED GENERIC DRUG [Concomitant]
     Indication: PRODUCT USED FOR UNKNOWN INDICATION
     Route: 065
  9. GREEN TEA [Concomitant]
     Indication: PRODUCT USED FOR UNKNOWN INDICATION
     Route: 065
     Dates: end: 201306

REACTIONS (7)
  - Musculoskeletal discomfort [Recovering/Resolving]
  - Chest pain [Recovering/Resolving]
  - Chest pain [Unknown]
  - Dizziness [Recovering/Resolving]
  - Inappropriate schedule of drug administration [Unknown]
  - Local swelling [Recovered/Resolved]
  - Dyspnoea [Recovering/Resolving]
